FAERS Safety Report 4422958-7 (Version None)
Quarter: 2004Q3

REPORT INFORMATION
  Report Type: 
  Country: None (occurrence: None)
  Receive Date: 20040806
  Receipt Date: 20040726
  Transmission Date: 20050211
  Serious: Yes (Hospitalization)
  Sender: FDA-Public Use
  Company Number: US-JNJFOC-20040707039

PATIENT
  Age: 68 Year
  Sex: Female

DRUGS (13)
  1. INFLIXIMAB (INFLIXIMAB, RECOMBINANT) LYOPHILIZED POWDER [Suspect]
     Indication: RHEUMATOID ARTHRITIS
     Dosage: EVERY 6 WEEKS
     Dates: start: 20000808
  2. CELEBREX [Concomitant]
  3. METHOTREXATE [Concomitant]
  4. PLAVIX [Concomitant]
  5. ALTACE [Concomitant]
  6. FOLIC ACID [Concomitant]
  7. ZOCOR [Concomitant]
  8. SYNTHR0ID (LEVOTHYROXINE SODIUM) [Concomitant]
  9. TYLENOL [Concomitant]
  10. NORVASC [Concomitant]
  11. PREDNISONE [Concomitant]
  12. PROTONIX [Concomitant]
  13. MULTIVITAMIN [Concomitant]

REACTIONS (1)
  - CORONARY ARTERY DISEASE [None]
